FAERS Safety Report 22006836 (Version 1)
Quarter: 2023Q1

REPORT INFORMATION
  Report Type: Spontaneous
  Country: US (occurrence: US)
  Receive Date: 20230217
  Receipt Date: 20230217
  Transmission Date: 20230418
  Serious: No
  Sender: FDA-Public Use
  Company Number: US-BRISTOL-MYERS SQUIBB COMPANY-2023-023817

PATIENT
  Age: 61 Year
  Sex: Male

DRUGS (2)
  1. REVLIMID [Suspect]
     Active Substance: LENALIDOMIDE
     Indication: Plasma cell myeloma
     Dosage: FREQ - TAKE 1 CAPSULE OF 2.5MG AND ONE CAPSULE OF 5MG BY MOUTH ONCE DAILY FOR 21 DAYS AND THEN HOLD
     Route: 048
  2. REVLIMID [Suspect]
     Active Substance: LENALIDOMIDE
     Dosage: FREQ - TAKE 1 CAPSULE OF 2.5MG AND ONE CAPSULE OF 5MG BY MOUTH ONCE DAILY FOR 21 DAYS AND THEN HOLD
     Route: 048

REACTIONS (1)
  - Off label use [Unknown]
